FAERS Safety Report 5757697-3 (Version None)
Quarter: 2008Q2

REPORT INFORMATION
  Report Type: 
  Country: None (occurrence: None)
  Receive Date: 20080529
  Receipt Date: 20080521
  Transmission Date: 20081010
  Serious: Yes (Other)
  Sender: FDA-Public Use
  Company Number: 2008013452

PATIENT
  Age: 41 Year
  Sex: Male

DRUGS (2)
  1. CETIRIZINE HCL [Suspect]
     Dosage: 10 MG DAILY, ORAL
     Route: 048
  2. DICLOFENAC SODIUM [Suspect]
     Dosage: 50 MG THREE TIMES DAILY, ORAL
     Route: 048

REACTIONS (2)
  - DRY EYE [None]
  - EYE PAIN [None]
